FAERS Safety Report 11855759 (Version 2)
Quarter: 2016Q1

REPORT INFORMATION
  Report Type: Report from Study
  Country: CA (occurrence: CA)
  Receive Date: 20151221
  Receipt Date: 20160317
  Transmission Date: 20160526
  Serious: Yes (Hospitalization)
  Sender: FDA-Public Use
  Company Number: CA-ABBVIE-10P-028-0624924-00

PATIENT
  Age: 51 Year
  Sex: Female
  Weight: 66.74 kg

DRUGS (5)
  1. TIAMOL [Concomitant]
     Indication: PSORIASIS
     Dates: start: 20071109
  2. LOPROX [Concomitant]
     Active Substance: CICLOPIROX\CICLOPIROX OLAMINE
     Indication: PSORIASIS
     Dates: start: 20071109
  3. HUMIRA COMMERCIAL [Concomitant]
     Indication: PSORIASIS
     Dates: start: 20090529
  4. BETNOVATE [Concomitant]
     Active Substance: BETAMETHASONE
     Indication: PSORIASIS
     Dates: start: 19980528
  5. HUMIRA [Suspect]
     Active Substance: ADALIMUMAB
     Indication: PSORIASIS
     Route: 058
     Dates: start: 20091111, end: 20091201

REACTIONS (3)
  - Anorectal cellulitis [Recovered/Resolved]
  - Type 2 diabetes mellitus [Recovered/Resolved]
  - Anal abscess [Recovered/Resolved]

NARRATIVE: CASE EVENT DATE: 20091215
